FAERS Safety Report 6082566-1 (Version None)
Quarter: 2009Q1

REPORT INFORMATION
  Report Type: 
  Country: None (occurrence: None)
  Receive Date: 20090218
  Receipt Date: 20090206
  Transmission Date: 20090719
  Serious: Yes (Other)
  Sender: FDA-Public Use
  Company Number: US-JNJFOC-20080705041

PATIENT
  Sex: Female
  Weight: 54.43 kg

DRUGS (4)
  1. REMICADE [Suspect]
     Route: 042
  2. REMICADE [Suspect]
     Dosage: 2 INFUSIONS ADMINISTERED 10 YEARS AGO
     Route: 042
  3. REMICADE [Suspect]
     Indication: CROHN'S DISEASE
     Route: 042
  4. CELEXA [Concomitant]
     Indication: DEPRESSION

REACTIONS (11)
  - ARTHRALGIA [None]
  - CONTUSION [None]
  - COUGH [None]
  - HEADACHE [None]
  - MYALGIA [None]
  - NAUSEA [None]
  - OROPHARYNGEAL PAIN [None]
  - PAIN [None]
  - PRURITUS GENERALISED [None]
  - PYREXIA [None]
  - RASH [None]
